FAERS Safety Report 23682164 (Version 1)
Quarter: 2024Q1

REPORT INFORMATION
  Report Type: Spontaneous
  Country: RU (occurrence: None)
  Receive Date: 20240328
  Receipt Date: 20240328
  Transmission Date: 20240410
  Serious: Yes (Other)
  Sender: FDA-Public Use
  Company Number: RU-ROCHE-3531051

PATIENT
  Sex: Female

DRUGS (5)
  1. TRASTUZUMAB [Suspect]
     Active Substance: TRASTUZUMAB
     Indication: Breast cancer stage II
     Dosage: LOADING DOSE 8 MG/KG - 512 MG) ON DAY 1
     Route: 041
     Dates: start: 20201009, end: 20210127
  2. PERTUZUMAB [Suspect]
     Active Substance: PERTUZUMAB
     Indication: Breast cancer stage II
     Dosage: (LOADING DOSE 840 MG) ON DAY 1; CYCLE DURATION 21 DAYS
     Route: 065
     Dates: start: 20201009, end: 20210127
  3. ADO-TRASTUZUMAB EMTANSINE [Suspect]
     Active Substance: ADO-TRASTUZUMAB EMTANSINE
     Indication: Breast cancer stage II
     Dosage: 3.6 MG/KG - 223 MG IV DRIP ON DAY 1.
     Route: 041
     Dates: start: 20220913, end: 20221115
  4. CARBOPLATIN [Suspect]
     Active Substance: CARBOPLATIN
     Indication: Breast cancer stage II
     Route: 065
     Dates: start: 20201009, end: 20210127
  5. DOCETAXEL [Suspect]
     Active Substance: DOCETAXEL\DOCETAXEL ANHYDROUS
     Indication: Breast cancer stage II
     Dosage: 75 MG/M2 (127.5 MG) ON DAY 1
     Route: 065
     Dates: start: 20201009, end: 20210127

REACTIONS (2)
  - Metastases to adrenals [Unknown]
  - Ejection fraction abnormal [Unknown]
